FAERS Safety Report 12167340 (Version 1)
Quarter: 2016Q1

REPORT INFORMATION
  Report Type: Spontaneous
  Country: JP (occurrence: JP)
  Receive Date: 20160310
  Receipt Date: 20160310
  Transmission Date: 20160526
  Serious: Yes (Death, Other)
  Sender: FDA-Public Use
  Company Number: JP-GLAXOSMITHKLINE-JP2016JPN032649

PATIENT
  Age: 39 Year
  Sex: Female

DRUGS (3)
  1. VOLIBRIS [Suspect]
     Active Substance: AMBRISENTAN
     Indication: PULMONARY ARTERIAL HYPERTENSION
     Dosage: UNK
     Route: 048
  2. UNKNOWN DRUG [Concomitant]
     Active Substance: UNSPECIFIED INGREDIENT
     Dosage: UNK
  3. FLOLAN [Suspect]
     Active Substance: EPOPROSTENOL SODIUM
     Indication: PULMONARY ARTERIAL HYPERTENSION
     Dosage: UNK
     Route: 041

REACTIONS (6)
  - Exposure during pregnancy [Unknown]
  - Pulmonary arterial hypertension [Fatal]
  - Cardio-respiratory arrest [Unknown]
  - Haemodynamic instability [Unknown]
  - Cardiac output decreased [Unknown]
  - Hypoxia [Unknown]
